FAERS Safety Report 13274714 (Version 7)
Quarter: 2017Q3

REPORT INFORMATION
  Report Type: Spontaneous
  Country: KR (occurrence: KR)
  Receive Date: 20170227
  Receipt Date: 20170825
  Transmission Date: 20171127
  Serious: Yes (Hospitalization, Other)
  Sender: FDA-Public Use
  Company Number: KR-009507513-1702KOR010291

PATIENT
  Age: 63 Year
  Sex: Male
  Weight: 73.7 kg

DRUGS (49)
  1. EMEND (FOSAPREPITANT DIMEGLUMINE) [Suspect]
     Active Substance: FOSAPREPITANT DIMEGLUMINE
     Dosage: 150 MG, ONCE
     Route: 042
     Dates: start: 20170118, end: 20170118
  2. LASTET [Concomitant]
     Active Substance: ETOPOSIDE
     Dosage: 181 MG, QD, CYCLE 2 (STRENGTH:100MG/5ML)
     Route: 042
     Dates: start: 20161228, end: 20161230
  3. CISPLAN [Concomitant]
     Active Substance: CISPLATIN
     Dosage: 122 MG, ONCE, CYCLE 5 (STRENGTH: 50MG/100ML)
     Route: 042
     Dates: start: 20170302, end: 20170302
  4. SANCUSO [Concomitant]
     Active Substance: GRANISETRON
     Dosage: 1 PATCH (EA), QD, (STRENGTH: 80.2X66.6 MM2)
     Route: 062
     Dates: start: 20170207, end: 20170213
  5. CENTRUM (MINERALS (UNSPECIFIED) (+) VITAMINS (UNSPECIFIED)) [Concomitant]
     Indication: NUTRITIONAL SUPPLEMENTATION
     Dosage: 1 TABLET, QD
     Route: 048
     Dates: start: 20161208, end: 20170321
  6. LASIX [Concomitant]
     Active Substance: FUROSEMIDE
     Dosage: 20 MG, (STRENGTH: 20MG/2ML)
     Route: 042
     Dates: start: 20161228, end: 20161228
  7. CISPLAN [Concomitant]
     Active Substance: CISPLATIN
     Indication: SMALL CELL LUNG CANCER
     Dosage: 128 MG, ONCE, CYCLE 1 (STRENGTH: 50MG/100ML)
     Route: 042
     Dates: start: 20161208, end: 20161208
  8. SANCUSO [Concomitant]
     Active Substance: GRANISETRON
     Indication: PROPHYLAXIS OF NAUSEA AND VOMITING
     Dosage: 1 PATCH (EA), QD, (STRENGTH: 80.2X66.6 MM2)
     Route: 062
     Dates: start: 20161207, end: 20161213
  9. SANCUSO [Concomitant]
     Active Substance: GRANISETRON
     Dosage: 1 PATCH (EA), QD, (STRENGTH: 80.2X66.6 MM2)
     Route: 062
     Dates: start: 20161227, end: 20170102
  10. LASIX [Concomitant]
     Active Substance: FUROSEMIDE
     Indication: PROPHYLAXIS
     Dosage: 20 MG, (STRENGTH: 20MG/2ML)
     Route: 042
     Dates: start: 20161208, end: 20161208
  11. LASIX [Concomitant]
     Active Substance: FUROSEMIDE
     Dosage: 20 MG, (STRENGTH: 20MG/2ML)
     Route: 042
     Dates: start: 20170302, end: 20170302
  12. LASTET [Concomitant]
     Active Substance: ETOPOSIDE
     Dosage: 180 MG, QD, CYCLE 4 (STRENGTH:100MG/5ML)
     Route: 042
     Dates: start: 20170208, end: 20170210
  13. LASTET [Concomitant]
     Active Substance: ETOPOSIDE
     Dosage: 175 MG, ONCE, CYCLE 6 (STRENGTH:100MG/5ML)
     Route: 042
     Dates: start: 20170322, end: 20170322
  14. SANCUSO [Concomitant]
     Active Substance: GRANISETRON
     Dosage: 1 PATCH (EA), QD, (STRENGTH: 80.2X66.6 MM2)
     Route: 062
     Dates: start: 20170301, end: 20170307
  15. CODENAL (CHLORPHENIRAMINE MALEATE (+) DIHYDROCODEINE BITARTRATE (+) GU [Concomitant]
     Indication: COUGH
     Dosage: 15 ML, TID
     Route: 048
     Dates: start: 20161208, end: 20161227
  16. CURAN [Concomitant]
     Active Substance: RANITIDINE HYDROCHLORIDE
     Dosage: ONCE (STRENGTH: 50MG/2ML)
     Route: 042
     Dates: start: 20170118, end: 20170118
  17. CURAN [Concomitant]
     Active Substance: RANITIDINE HYDROCHLORIDE
     Dosage: 50 MG, ONCE (STRENGTH: 50MG/2ML)
     Route: 042
     Dates: start: 20170322, end: 20170322
  18. LASIX [Concomitant]
     Active Substance: FUROSEMIDE
     Dosage: 20 MG, (STRENGTH: 20MG/2ML)
     Route: 042
     Dates: start: 20170208, end: 20170208
  19. MYPOL [Concomitant]
     Indication: CANCER PAIN
     Dosage: 1 CAPSULE, TID
     Route: 048
     Dates: start: 20161205, end: 20161227
  20. TAZIM [Concomitant]
     Indication: PROPHYLAXIS
     Dosage: 2 G, TID
     Route: 042
     Dates: start: 20161207, end: 20161212
  21. UMCKAN [Concomitant]
     Indication: CHRONIC OBSTRUCTIVE PULMONARY DISEASE
     Dosage: 1 TABLET, BID
     Route: 048
     Dates: start: 20151030
  22. EMEND (FOSAPREPITANT DIMEGLUMINE) [Suspect]
     Active Substance: FOSAPREPITANT DIMEGLUMINE
     Dosage: 150 MG, ONCE
     Route: 042
     Dates: start: 20161228, end: 20161228
  23. CISPLAN [Concomitant]
     Active Substance: CISPLATIN
     Dosage: 126 MG, ONCE, CYCLE 3 (STRENGTH: 50MG/100ML)
     Route: 042
     Dates: start: 20170118, end: 20170118
  24. DEXAMETHASONE SODIUM PHOSPHATE. [Concomitant]
     Active Substance: DEXAMETHASONE SODIUM PHOSPHATE
     Dosage: 12 MG, ONCE (STRENGTH: 100MG/5ML)
     Route: 042
     Dates: start: 20170118, end: 20170118
  25. DEXAMETHASONE SODIUM PHOSPHATE. [Concomitant]
     Active Substance: DEXAMETHASONE SODIUM PHOSPHATE
     Dosage: 12 MG, ONCE (STRENGTH: 100MG/5ML)
     Route: 042
     Dates: start: 20170322, end: 20170322
  26. SANCUSO [Concomitant]
     Active Substance: GRANISETRON
     Dosage: 1 PATCH (EA), QD, (STRENGTH: 80.2X66.6 MM2)
     Route: 062
     Dates: start: 20170321, end: 20170327
  27. CURAN [Concomitant]
     Active Substance: RANITIDINE HYDROCHLORIDE
     Indication: PROPHYLAXIS
     Dosage: 50 MG, ONCE (STRENGTH: 50MG/2ML)
     Route: 042
     Dates: start: 20161208, end: 20161208
  28. COSAROTAN PLUS [Concomitant]
     Indication: HYPERTENSION
     Dosage: 1 TABLET, QD
     Route: 048
     Dates: start: 2006
  29. CISPLAN [Concomitant]
     Active Substance: CISPLATIN
     Dosage: 126 MG, ONCE, CYCLE 2 (STRENGTH: 50MG/100ML)
     Route: 042
     Dates: start: 20161228, end: 20161228
  30. CISPLAN [Concomitant]
     Active Substance: CISPLATIN
     Dosage: 126 MG, ONCE, CYCLE 4 (STRENGTH: 50MG/100ML)
     Route: 042
     Dates: start: 20170208, end: 20170208
  31. EMEND (FOSAPREPITANT DIMEGLUMINE) [Suspect]
     Active Substance: FOSAPREPITANT DIMEGLUMINE
     Indication: PROPHYLAXIS OF NAUSEA AND VOMITING
     Dosage: 150 MG, ONCE
     Route: 042
     Dates: start: 20161208, end: 20161208
  32. EMEND (FOSAPREPITANT DIMEGLUMINE) [Suspect]
     Active Substance: FOSAPREPITANT DIMEGLUMINE
     Dosage: 150 MG, ONCE
     Route: 042
     Dates: start: 20170208, end: 20170208
  33. EMEND (FOSAPREPITANT DIMEGLUMINE) [Suspect]
     Active Substance: FOSAPREPITANT DIMEGLUMINE
     Dosage: 150 MG, ONCE
     Route: 042
     Dates: start: 20170302, end: 20170302
  34. EMEND (FOSAPREPITANT DIMEGLUMINE) [Suspect]
     Active Substance: FOSAPREPITANT DIMEGLUMINE
     Dosage: 150 MG, ONCE
     Route: 042
     Dates: start: 20170322, end: 20170322
  35. DEXAMETHASONE SODIUM PHOSPHATE. [Concomitant]
     Active Substance: DEXAMETHASONE SODIUM PHOSPHATE
     Dosage: 12 MG, ONCE (STRENGTH: 100MG/5ML)
     Route: 042
     Dates: start: 20161228, end: 20161228
  36. DEXAMETHASONE SODIUM PHOSPHATE. [Concomitant]
     Active Substance: DEXAMETHASONE SODIUM PHOSPHATE
     Dosage: 12 MG, ONCE (STRENGTH: 100MG/5ML)
     Route: 042
     Dates: start: 20170302, end: 20170302
  37. CURAN [Concomitant]
     Active Substance: RANITIDINE HYDROCHLORIDE
     Dosage: 50 MG, ONCE (STRENGTH: 50MG/2ML)
     Route: 042
     Dates: start: 20161228, end: 20161228
  38. CURAN [Concomitant]
     Active Substance: RANITIDINE HYDROCHLORIDE
     Dosage: ONCE (STRENGTH: 50MG/2ML)
     Route: 042
     Dates: start: 20170302, end: 20170302
  39. ATORVATIN [Concomitant]
     Indication: PROPHYLAXIS
     Dosage: 10 MG, QD
     Route: 048
     Dates: start: 2006
  40. LASTET [Concomitant]
     Active Substance: ETOPOSIDE
     Dosage: 175 MG, ONCE, CYCLE 5 (STRENGTH:100MG/5ML)
     Route: 042
     Dates: start: 20170302, end: 20170302
  41. CISPLAN [Concomitant]
     Active Substance: CISPLATIN
     Dosage: 122 MG, ONCE, CYCLE 6 (STRENGTH: 50MG/100ML)
     Route: 042
     Dates: start: 20170322, end: 20170322
  42. DEXAMETHASONE SODIUM PHOSPHATE. [Concomitant]
     Active Substance: DEXAMETHASONE SODIUM PHOSPHATE
     Dosage: 12 MG, ONCE (STRENGTH: 100MG/5ML)
     Route: 042
     Dates: start: 20170208, end: 20170208
  43. LASIX [Concomitant]
     Active Substance: FUROSEMIDE
     Dosage: 20 MG, (STRENGTH: 20MG/2ML)
     Route: 042
     Dates: start: 20170118, end: 20170118
  44. LASTET [Concomitant]
     Active Substance: ETOPOSIDE
     Indication: SMALL CELL LUNG CANCER
     Dosage: 183 MG, QD, CYCLE 1 (STRENGTH:100MG/5ML)
     Route: 042
     Dates: start: 20161208, end: 20161210
  45. LASTET [Concomitant]
     Active Substance: ETOPOSIDE
     Dosage: 181 MG, QD, CYCLE 3 (STRENGTH:100MG/5ML)
     Route: 042
     Dates: start: 20170118, end: 20170120
  46. DEXAMETHASONE SODIUM PHOSPHATE. [Concomitant]
     Active Substance: DEXAMETHASONE SODIUM PHOSPHATE
     Indication: PROPHYLAXIS OF NAUSEA AND VOMITING
     Dosage: 12 MG, ONCE (STRENGTH: 100MG/5ML)
     Route: 042
     Dates: start: 20161208, end: 20161208
  47. SANCUSO [Concomitant]
     Active Substance: GRANISETRON
     Dosage: 1 PATCH (EA), QD, (STRENGTH: 80.2X66.6 MM2)
     Route: 062
     Dates: start: 20170117, end: 20170122
  48. DUPHALAC  EASY [Concomitant]
     Indication: CONSTIPATION
     Dosage: 15 ML, BID
     Route: 048
     Dates: start: 20161208
  49. ANORO ELLIPTA [Concomitant]
     Active Substance: UMECLIDINIUM BROMIDE\VILANTEROL TRIFENATATE
     Indication: CHRONIC OBSTRUCTIVE PULMONARY DISEASE
     Dosage: 1 PUFF, QD
     Route: 055
     Dates: start: 20151030

REACTIONS (13)
  - Hiccups [Recovered/Resolved]
  - Neutropenia [Recovered/Resolved]
  - Nausea [Recovered/Resolved]
  - Rhinitis [Recovered/Resolved]
  - Dyspepsia [Recovered/Resolved]
  - Diabetes mellitus [Not Recovered/Not Resolved]
  - Gastrooesophageal reflux disease [Recovered/Resolved]
  - Atrial fibrillation [Recovered/Resolved]
  - Cough [Recovered/Resolved]
  - Neutropenia [Recovered/Resolved]
  - Nausea [Recovered/Resolved]
  - Nausea [Recovered/Resolved]
  - Liver function test increased [Recovered/Resolved]

NARRATIVE: CASE EVENT DATE: 20161208
